FAERS Safety Report 6626131-3 (Version None)
Quarter: 2010Q1

REPORT INFORMATION
  Report Type: 
  Country: None (occurrence: None)
  Receive Date: 20100310
  Receipt Date: 20100308
  Transmission Date: 20100710
  Serious: Yes (Hospitalization)
  Sender: FDA-Public Use
  Company Number: D0066553A

PATIENT
  Sex: Female
  Weight: 80 kg

DRUGS (3)
  1. TYVERB [Suspect]
     Route: 048
     Dates: start: 20090908, end: 20100219
  2. METHOTREXATE [Suspect]
     Route: 037
  3. CYTOSTATICS [Suspect]
     Route: 065

REACTIONS (3)
  - MENINGISM [None]
  - METASTASES TO MENINGES [None]
  - PARANEOPLASTIC SYNDROME [None]
